FAERS Safety Report 12265049 (Version 1)
Quarter: 2016Q2

REPORT INFORMATION
  Report Type: Report from Study
  Country: TN (occurrence: TN)
  Receive Date: 20160413
  Receipt Date: 20160413
  Transmission Date: 20160815
  Serious: Yes (Death, Hospitalization)
  Sender: FDA-Public Use
  Company Number: TN-SA-2016SA069726

PATIENT
  Age: 53 Year
  Sex: Male

DRUGS (7)
  1. CORVASAL [Concomitant]
     Active Substance: LINSIDOMINE
     Route: 048
     Dates: end: 201602
  2. ISOPHANE INSULIN [Concomitant]
     Active Substance: INSULIN NOS
     Route: 048
     Dates: end: 201602
  3. PLAVIX [Suspect]
     Active Substance: CLOPIDOGREL BISULFATE
     Indication: ACUTE CORONARY SYNDROME
     Route: 048
     Dates: start: 20140226, end: 201602
  4. HYPOTEN [Concomitant]
     Route: 048
     Dates: end: 201602
  5. ATOR [Concomitant]
     Active Substance: ATORVASTATIN CALCIUM
     Route: 048
     Dates: end: 201602
  6. ASPEGIC [Concomitant]
     Active Substance: ASPIRIN DL-LYSINE
     Route: 048
     Dates: end: 201602
  7. LOPRIL [Concomitant]
     Active Substance: LISINOPRIL
     Route: 048
     Dates: end: 201602

REACTIONS (1)
  - Road traffic accident [Fatal]

NARRATIVE: CASE EVENT DATE: 20160203
